FAERS Safety Report 5326842-6 (Version None)
Quarter: 2007Q2

REPORT INFORMATION
  Report Type: 
  Country: None (occurrence: None)
  Receive Date: 20070509
  Receipt Date: 20070424
  Transmission Date: 20071010
  Serious: Yes (Life-Threatening)
  Sender: FDA-Public Use
  Company Number: WAES 0112USA02604

PATIENT
  Age: 24 Year
  Sex: Male

DRUGS (20)
  1. CRIXIVAN [Suspect]
     Indication: HIV INFECTION
     Dosage: 800 MG/DAILY PO
     Route: 048
     Dates: start: 20000318, end: 20000524
  2. EFAVIRENZ [Suspect]
     Indication: HIV INFECTION
     Dosage: 600 MG/DAILY PO
     Route: 048
     Dates: start: 20000724, end: 20000725
  3. EFAVIRENZ [Suspect]
     Indication: HIV INFECTION
     Dosage: 600 MG/DAILY PO
     Route: 048
     Dates: start: 20000925, end: 20001002
  4. DIDANOSINE [Suspect]
     Indication: HIV INFECTION
     Dosage: 300 MG/DAILY PO
     Route: 048
     Dates: start: 19991101
  5. CAP STAVUDINE [Suspect]
     Indication: HIV INFECTION
     Dosage: 80 MG/DAILY PO
     Route: 048
     Dates: start: 20001225
  6. TAB [THERAPY UNSPECIFIED] [Suspect]
     Indication: HIV INFECTION
     Dosage: 600 MG/DAILY PO
     Route: 048
     Dates: start: 20000724, end: 20000725
  7. CAP SAQUINAVIR MESYLATE [Suspect]
     Indication: HIV INFECTION
     Dosage: SEE IMAGE
     Dates: start: 19991101, end: 20000318
  8. CAP SAQUINAVIR MESYLATE [Suspect]
     Indication: HIV INFECTION
     Dosage: SEE IMAGE
     Dates: start: 19990619, end: 20000318
  9. CAP SAQUINAVIR MESYLATE [Suspect]
     Indication: HIV INFECTION
     Dosage: SEE IMAGE
     Dates: start: 20000524
  10. CAP RITONAVIR [Suspect]
     Indication: HIV INFECTION
     Dosage: SEE IMAGE
     Dates: start: 19990619, end: 19991031
  11. CAP RITONAVIR [Suspect]
     Indication: HIV INFECTION
     Dosage: SEE IMAGE
     Dates: start: 19991101, end: 20001224
  12. CAP RITONAVIR [Suspect]
     Indication: HIV INFECTION
     Dosage: SEE IMAGE
     Dates: start: 20050401
  13. VIDEX [Suspect]
     Indication: HIV INFECTION
     Dosage: SEE IMAGE
     Route: 048
     Dates: start: 19941219, end: 19970307
  14. VIDEX [Suspect]
     Indication: HIV INFECTION
     Dosage: SEE IMAGE
     Route: 048
     Dates: start: 19970308, end: 20010721
  15. VIDEX EC [Suspect]
     Indication: HIV INFECTION
     Dosage: 400 MG/DAILY PO
     Route: 048
     Dates: start: 20010722, end: 20040514
  16. ZIAGEN [Suspect]
     Dosage: 600 MG/DAILY PO
     Route: 048
     Dates: start: 20000724, end: 20000725
  17. ZIAGEN [Suspect]
     Dosage: 600 MG/DAILY PO
     Route: 048
     Dates: start: 20011020, end: 20011027
  18. KALETRA [Suspect]
     Indication: HIV INFECTION
     Dosage: 6 DOSE/DAILY PO
     Route: 048
     Dates: start: 20001225, end: 20040424
  19. EPIVIR [Suspect]
     Indication: HIV INFECTION
     Dosage: 300 MG/DAILY PO
     Route: 048
     Dates: start: 20040515
  20. FACTOR VIII [Concomitant]

REACTIONS (5)
  - ALANINE AMINOTRANSFERASE INCREASED [None]
  - ASPARTATE AMINOTRANSFERASE INCREASED [None]
  - DIZZINESS [None]
  - PALPITATIONS [None]
  - PULMONARY HYPERTENSION [None]
